FAERS Safety Report 24628534 (Version 1)
Quarter: 2024Q4

REPORT INFORMATION
  Report Type: Spontaneous
  Country: CN (occurrence: CN)
  Receive Date: 20241117
  Receipt Date: 20241117
  Transmission Date: 20250115
  Serious: Yes (Other)
  Sender: BEIGENE
  Company Number: CN-BEIGENE-BGN-2024-017996

PATIENT

DRUGS (1)
  1. TISLELIZUMAB [Suspect]
     Active Substance: TISLELIZUMAB
     Indication: Neoplasm malignant
     Dosage: 2 PIECES
     Route: 041
     Dates: start: 20241009

REACTIONS (3)
  - Anal ulcer [Recovered/Resolved]
  - Hypersensitivity [Recovered/Resolved]
  - Scrotal ulcer [Recovering/Resolving]

NARRATIVE: CASE EVENT DATE: 20241010
